FAERS Safety Report 9628603 (Version 3)
Quarter: 2014Q1

REPORT INFORMATION
  Report Type: Report from Study
  Country: CA (occurrence: CA)
  Receive Date: 20131017
  Receipt Date: 20140114
  Transmission Date: 20141002
  Serious: Yes (Other)
  Sender: FDA-Public Use
  Company Number: CA-JNJFOC-20131006924

PATIENT
  Age: 40 Year
  Sex: Male
  Weight: 128.5 kg

DRUGS (5)
  1. REMICADE [Suspect]
     Indication: ANKYLOSING SPONDYLITIS
     Dosage: 28TH INFUSION
     Route: 042
     Dates: start: 20130829
  2. REMICADE [Suspect]
     Indication: ANKYLOSING SPONDYLITIS
     Route: 042
     Dates: start: 20090919
  3. NAPROXEN [Concomitant]
     Route: 065
  4. NEXIUM [Concomitant]
     Route: 065
  5. PRED FORTE [Concomitant]
     Route: 065

REACTIONS (7)
  - Road traffic accident [Unknown]
  - Rib fracture [Not Recovered/Not Resolved]
  - Arthralgia [Not Recovered/Not Resolved]
  - Flushing [Recovered/Resolved]
  - Dizziness [Not Recovered/Not Resolved]
  - Contusion [Not Recovered/Not Resolved]
  - Urticaria [Recovered/Resolved]
